FAERS Safety Report 20997413 (Version 1)
Quarter: 2022Q2

REPORT INFORMATION
  Report Type: Spontaneous
  Country: TW (occurrence: TW)
  Receive Date: 20220623
  Receipt Date: 20220623
  Transmission Date: 20220720
  Serious: Yes (Other)
  Sender: FDA-Public Use
  Company Number: TW-SUN PHARMACEUTICAL INDUSTRIES LTD-2022RR-341799

PATIENT
  Age: 57 Year
  Sex: Male

DRUGS (4)
  1. OXALIPLATIN [Suspect]
     Active Substance: OXALIPLATIN
     Indication: Ductal adenocarcinoma of pancreas
     Dosage: 75 MILLIGRAM/SQ. METER, DAY 1
     Route: 065
     Dates: start: 201810
  2. LEUCOVORIN CALCIUM [Suspect]
     Active Substance: LEUCOVORIN CALCIUM
     Indication: Ductal adenocarcinoma of pancreas
     Dosage: UNK
     Route: 065
     Dates: start: 201810
  3. PACLITAXEL [Suspect]
     Active Substance: PACLITAXEL
     Indication: Ductal adenocarcinoma of pancreas
     Dosage: 150 MILLIGRAM/SQ. METER, DAY 1
     Route: 065
     Dates: start: 201810
  4. TS-1 [Suspect]
     Active Substance: GIMERACIL\OTERACIL\TEGAFUR
     Indication: Ductal adenocarcinoma of pancreas
     Dosage: 120 MILLIGRAM, DAILY, DAYS 1-7
     Route: 065
     Dates: start: 201810

REACTIONS (4)
  - Therapy partial responder [Unknown]
  - Neutropenia [Unknown]
  - Hypoaesthesia [Unknown]
  - Drug intolerance [Unknown]
